FAERS Safety Report 16821716 (Version 1)
Quarter: 2019Q3

REPORT INFORMATION
  Report Type: Spontaneous
  Country: US (occurrence: US)
  Receive Date: 20190918
  Receipt Date: 20190918
  Transmission Date: 20191005
  Serious: No
  Sender: FDA-Public Use
  Company Number: US-APOTEX-2019AP008843

PATIENT
  Age: 89 Year
  Sex: Female

DRUGS (13)
  1. BREO ELLIPTA [Interacting]
     Active Substance: FLUTICASONE FUROATE\VILANTEROL TRIFENATATE
     Dosage: UNK, BID
     Route: 065
  2. BREO ELLIPTA [Interacting]
     Active Substance: FLUTICASONE FUROATE\VILANTEROL TRIFENATATE
     Dosage: UNK, QD
     Route: 065
     Dates: start: 201712
  3. BREO ELLIPTA [Interacting]
     Active Substance: FLUTICASONE FUROATE\VILANTEROL TRIFENATATE
     Dosage: UNK, Q.H.S.
     Route: 065
  4. METOPROLOL. [Suspect]
     Active Substance: METOPROLOL
     Indication: PRODUCT USED FOR UNKNOWN INDICATION
     Dosage: 25 MG, QD
     Route: 048
  5. SYNTHROID [Concomitant]
     Active Substance: LEVOTHYROXINE SODIUM
     Indication: PRODUCT USED FOR UNKNOWN INDICATION
     Dosage: UNK
     Route: 065
  6. BREO ELLIPTA [Interacting]
     Active Substance: FLUTICASONE FUROATE\VILANTEROL TRIFENATATE
     Indication: ASTHMA
     Dosage: UNK UNK, Z
     Route: 055
  7. PAROXETINE. [Suspect]
     Active Substance: PAROXETINE
     Indication: PRODUCT USED FOR UNKNOWN INDICATION
     Dosage: UNK AS NEEDED
     Route: 065
  8. BREO ELLIPTA [Interacting]
     Active Substance: FLUTICASONE FUROATE\VILANTEROL TRIFENATATE
     Indication: BRONCHITIS
     Dosage: UNK
     Route: 055
     Dates: start: 20180219
  9. ANORO ELLIPTA [Suspect]
     Active Substance: UMECLIDINIUM BROMIDE\VILANTEROL TRIFENATATE
     Indication: BRONCHITIS
  10. BREO ELLIPTA [Interacting]
     Active Substance: FLUTICASONE FUROATE\VILANTEROL TRIFENATATE
     Dosage: UNK
     Route: 065
     Dates: start: 2017
  11. VITAMINS                           /00067501/ [Concomitant]
     Active Substance: VITAMINS
     Indication: PRODUCT USED FOR UNKNOWN INDICATION
     Dosage: UNK
     Route: 065
  12. ANORO ELLIPTA [Suspect]
     Active Substance: UMECLIDINIUM BROMIDE\VILANTEROL TRIFENATATE
     Indication: LUNG DISORDER
     Dosage: 1 DF, QD (ONE PUFF DAILY)
     Route: 055
     Dates: start: 20180308
  13. MYRBETRIQ [Suspect]
     Active Substance: MIRABEGRON
     Indication: HYPERTONIC BLADDER
     Dosage: 50 MG, QD
     Route: 048
     Dates: start: 20180307

REACTIONS (25)
  - Musculoskeletal pain [Unknown]
  - Product use in unapproved indication [Not Recovered/Not Resolved]
  - Product prescribing error [Unknown]
  - Overdose [Unknown]
  - Hypertonic bladder [Not Recovered/Not Resolved]
  - Heart rate increased [Recovered/Resolved]
  - Dysphonia [Unknown]
  - Nasopharyngitis [Unknown]
  - Wheezing [Unknown]
  - Drug interaction [Unknown]
  - Throat clearing [Unknown]
  - Insomnia [Unknown]
  - Product use issue [Unknown]
  - Underdose [Unknown]
  - Discomfort [Unknown]
  - Secretion discharge [Unknown]
  - Abdominal pain upper [Unknown]
  - Dry throat [Unknown]
  - Fatigue [Not Recovered/Not Resolved]
  - Bronchitis [Unknown]
  - Laryngitis [Unknown]
  - Condition aggravated [Not Recovered/Not Resolved]
  - Throat irritation [Unknown]
  - Palpitations [Recovered/Resolved]
  - Dizziness [Not Recovered/Not Resolved]

NARRATIVE: CASE EVENT DATE: 20180308
